FAERS Safety Report 13429031 (Version 1)
Quarter: 2017Q2

REPORT INFORMATION
  Report Type: Spontaneous
  Country: NO (occurrence: NO)
  Receive Date: 20170411
  Receipt Date: 20170411
  Transmission Date: 20170830
  Serious: Yes (Hospitalization)
  Sender: FDA-Public Use
  Company Number: PHHY2017NO048935

PATIENT
  Age: 66 Year
  Sex: Male

DRUGS (2)
  1. FOLIC ACID. [Concomitant]
     Active Substance: FOLIC ACID
     Indication: PRODUCT USED FOR UNKNOWN INDICATION
     Dosage: TAKEN DAILY AS PRESCRIBED
     Route: 065
  2. METHOTREXATE. [Suspect]
     Active Substance: METHOTREXATE
     Indication: PSORIATIC ARTHROPATHY
     Dosage: 12.5 MG, QW, PATIENT CHANGED BY HIMSELF TO 2,5 MG DAILY FOR 5 DAYS FOLLOWED BY 2 DAYS WITHOUT MTX
     Route: 048
     Dates: start: 201609

REACTIONS (3)
  - Intentional product misuse [Recovered/Resolved]
  - Toxicity to various agents [Recovered/Resolved]
  - Incorrect dose administered [Recovered/Resolved]

NARRATIVE: CASE EVENT DATE: 20170210
